FAERS Safety Report 8247842-2 (Version None)
Quarter: 2012Q1

REPORT INFORMATION
  Report Type: 
  Country: None (occurrence: None)
  Receive Date: 20120330
  Receipt Date: 20120316
  Transmission Date: 20120608
  Serious: Yes (Other)
  Sender: FDA-Public Use
  Company Number: FR-FRI-1000029349

PATIENT
  Age: 66 Year
  Sex: Female

DRUGS (3)
  1. ANTIHYPERTENSIVES [Concomitant]
  2. MILNACIPRAN [Suspect]
     Dosage: 150 MG
     Route: 048
  3. MILNACIPRAN [Suspect]
     Dosage: 125 MG
     Route: 048

REACTIONS (2)
  - OVERDOSE [None]
  - CREATININE RENAL CLEARANCE DECREASED [None]
